FAERS Safety Report 6781478-5 (Version None)
Quarter: 2010Q2

REPORT INFORMATION
  Report Type: 
  Country: None (occurrence: None)
  Receive Date: 20100617
  Receipt Date: 20100617
  Transmission Date: 20101027
  Serious: Yes (Other)
  Sender: FDA-Public Use
  Company Number: None

PATIENT
  Sex: Female
  Weight: 59.8748 kg

DRUGS (1)
  1. THYROID TAB [Suspect]
     Indication: THYROID DISORDER
     Dosage: 60 M. M PER DAY LAST 30 YEARS

REACTIONS (10)
  - ALOPECIA [None]
  - DRY SKIN [None]
  - FATIGUE [None]
  - HUNGER [None]
  - POOR QUALITY SLEEP [None]
  - PRODUCT QUALITY ISSUE [None]
  - PRODUCT SUBSTITUTION ISSUE [None]
  - STRESS [None]
  - TEMPERATURE INTOLERANCE [None]
  - YAWNING [None]
